FAERS Safety Report 7717714-8 (Version None)
Quarter: 2011Q3

REPORT INFORMATION
  Report Type: 
  Country: None (occurrence: None)
  Receive Date: 20110824
  Receipt Date: 20110809
  Transmission Date: 20111222
  Serious: Yes (Disabling, Other)
  Sender: FDA-Public Use
  Company Number: 2011MA006605

PATIENT
  Sex: Female

DRUGS (3)
  1. METOCLOPRAMIDE [Suspect]
     Indication: DYSPEPSIA
     Dates: start: 20050101, end: 20090301
  2. METOCLOPRAMIDE [Suspect]
     Indication: ABDOMINAL DISTENSION
     Dates: start: 20050101, end: 20090301
  3. METOCLOPRAMIDE [Suspect]
     Indication: IMPAIRED GASTRIC EMPTYING
     Dates: start: 20050101, end: 20090301

REACTIONS (20)
  - MASTICATION DISORDER [None]
  - IMPAIRED WORK ABILITY [None]
  - DROOLING [None]
  - DEPRESSION [None]
  - EXTRAPYRAMIDAL DISORDER [None]
  - ECONOMIC PROBLEM [None]
  - EXCESSIVE EYE BLINKING [None]
  - RESTLESSNESS [None]
  - EMOTIONAL DISORDER [None]
  - DYSPNOEA [None]
  - NERVOUS SYSTEM DISORDER [None]
  - PAIN [None]
  - SPEECH DISORDER [None]
  - INSOMNIA [None]
  - TONGUE DISORDER [None]
  - ANXIETY [None]
  - TARDIVE DYSKINESIA [None]
  - BRUXISM [None]
  - TREMOR [None]
  - DYSPHAGIA [None]
